FAERS Safety Report 4312092-9 (Version None)
Quarter: 2004Q1

REPORT INFORMATION
  Report Type: 
  Country: None (occurrence: None)
  Receive Date: 20040304
  Receipt Date: 20040304
  Transmission Date: 20041129
  Serious: Yes (Life-Threatening, Hospitalization)
  Sender: FDA-Public Use
  Company Number: None

PATIENT
  Age: 17 Year
  Sex: Female
  Weight: 68 kg

DRUGS (18)
  1. VELCADE [Suspect]
     Indication: HODGKIN'S DISEASE
     Dosage: 2.3 MG TWICE WEEK INTRAVENOUS
     Route: 042
     Dates: start: 20040220, end: 20040227
  2. VELCADE [Suspect]
     Indication: NEOPLASM RECURRENCE
     Dosage: 2.3 MG TWICE WEEK INTRAVENOUS
     Route: 042
     Dates: start: 20040220, end: 20040227
  3. BACTRIM DS [Concomitant]
  4. ARANESP [Concomitant]
  5. KYTRIL [Concomitant]
  6. DIGOXIN [Concomitant]
  7. VIOXX [Concomitant]
  8. PREVACID [Concomitant]
  9. PEPCID [Concomitant]
  10. AMBIEN [Concomitant]
  11. CELEXA [Concomitant]
  12. DILAUDID [Concomitant]
  13. SCOPOLAMINE PATCH [Concomitant]
  14. XOPENEX NEBS [Concomitant]
  15. THROMBOPOIETIN [Concomitant]
  16. HALDOL [Concomitant]
  17. VORICONAZOLE [Concomitant]
  18. ETOPOSIDE [Concomitant]

REACTIONS (5)
  - BLOOD CREATININE INCREASED [None]
  - DEPRESSED LEVEL OF CONSCIOUSNESS [None]
  - LIVER FUNCTION TEST ABNORMAL [None]
  - PULSE ABSENT [None]
  - PUPIL FIXED [None]
